FAERS Safety Report 24986489 (Version 2)
Quarter: 2025Q1

REPORT INFORMATION
  Report Type: Spontaneous
  Country: ES (occurrence: ES)
  Receive Date: 20250219
  Receipt Date: 20250224
  Transmission Date: 20250409
  Serious: Yes (Death, Other)
  Sender: NOVARTIS
  Company Number: ES-002147023-NVSC2025ES027906

PATIENT
  Age: 18 Year
  Sex: Female

DRUGS (1)
  1. IMATINIB [Suspect]
     Active Substance: IMATINIB
     Indication: Gastrointestinal stromal tumour
     Route: 065

REACTIONS (2)
  - Gastrointestinal stromal tumour [Fatal]
  - Malignant neoplasm progression [Fatal]
